FAERS Safety Report 10845748 (Version 1)
Quarter: 2015Q1

REPORT INFORMATION
  Report Type: Spontaneous
  Country: US (occurrence: US)
  Receive Date: 20150220
  Receipt Date: 20150220
  Transmission Date: 20150721
  Serious: No
  Sender: FDA-Public Use
  Company Number: US-ABBVIE-14P-163-1314286-00

PATIENT

DRUGS (3)
  1. HUMIRA [Suspect]
     Active Substance: ADALIMUMAB
     Indication: PRODUCT USED FOR UNKNOWN INDICATION
     Dosage: LOADING DOSE
     Route: 065
     Dates: start: 201402, end: 201402
  2. HUMIRA [Suspect]
     Active Substance: ADALIMUMAB
     Route: 065
     Dates: start: 2014, end: 2014
  3. HUMIRA [Suspect]
     Active Substance: ADALIMUMAB
     Route: 065
     Dates: start: 2014

REACTIONS (13)
  - Pyrexia [Unknown]
  - Pyrexia [Recovered/Resolved]
  - Oropharyngeal pain [Unknown]
  - Infection [Unknown]
  - Body temperature increased [Unknown]
  - Oropharyngeal pain [Recovered/Resolved]
  - Gastrointestinal haemorrhage [Unknown]
  - Dyskinesia [Unknown]
  - Oral mucosal discolouration [Unknown]
  - Device related sepsis [Unknown]
  - Pain [Unknown]
  - Drug effect decreased [Unknown]
  - Inflammation [Unknown]

NARRATIVE: CASE EVENT DATE: 2014
